FAERS Safety Report 4935877-4 (Version None)
Quarter: 2006Q1

REPORT INFORMATION
  Report Type: 
  Country: None (occurrence: None)
  Receive Date: 20060127
  Receipt Date: 20051011
  Transmission Date: 20060701
  Serious: No
  Sender: FDA-Public Use
  Company Number: 2005142165

PATIENT
  Age: 82 Year
  Sex: Female
  Weight: 65.7716 kg

DRUGS (5)
  1. PREGABALIN (PREGABALIN) [Suspect]
     Indication: POST HERPETIC NEURALGIA
     Dosage: 300 MG (100 MG, 3 IN 1 D)
     Dates: start: 20050917
  2. LIPITOR [Concomitant]
  3. NORTRIPTYLINE (NORTRIPTYLINE) [Concomitant]
  4. ADVAIR DISKUS 100/50 [Concomitant]
  5. SPIRIVA [Concomitant]

REACTIONS (2)
  - MUSCLE SPASMS [None]
  - MYALGIA [None]
